FAERS Safety Report 5356545-3 (Version None)
Quarter: 2007Q2

REPORT INFORMATION
  Report Type: 
  Country: None (occurrence: None)
  Receive Date: 20070529
  Receipt Date: 20070313
  Transmission Date: 20071010
  Serious: Yes (Other)
  Sender: FDA-Public Use
  Company Number: 2007019865

PATIENT
  Age: 62 Year
  Sex: Male
  Weight: 95.3 kg

DRUGS (8)
  1. EXUBERA [Suspect]
     Indication: DIABETES MELLITUS NON-INSULIN-DEPENDENT
     Dosage: 12 MG (4 MG, 3 IN 1 D)
     Dates: start: 20070223
  2. GLUCOPHAGE [Concomitant]
  3. ACTOS [Concomitant]
  4. GLUCOTROL [Concomitant]
  5. LOPID [Concomitant]
  6. ATENOLOL [Concomitant]
  7. PAXIL [Concomitant]
  8. ALL OTHER THERAPEUTIC PRODUCTS (ALL OTHER THERAPEUTIC PRODUCTS) [Concomitant]

REACTIONS (1)
  - BLOOD GLUCOSE INCREASED [None]
